FAERS Safety Report 6759753-X (Version None)
Quarter: 2010Q2

REPORT INFORMATION
  Report Type: 
  Country: None (occurrence: None)
  Receive Date: 20100608
  Receipt Date: 20100601
  Transmission Date: 20101027
  Serious: Yes (Hospitalization)
  Sender: FDA-Public Use
  Company Number: PL-JNJFOC-20100600056

PATIENT
  Age: 18 Year
  Sex: Male

DRUGS (2)
  1. TOPAMAX [Suspect]
     Indication: SUICIDE ATTEMPT
     Route: 048
  2. UNSPECIFIED ALCOHOL [Suspect]
     Indication: DRUG USE FOR UNKNOWN INDICATION
     Route: 065

REACTIONS (7)
  - DELUSION [None]
  - DISORIENTATION [None]
  - DYSPHORIA [None]
  - HALLUCINATION [None]
  - OVERDOSE [None]
  - SOMNOLENCE [None]
  - VERTIGO [None]
